FAERS Safety Report 11133282 (Version 2)
Quarter: 2015Q2

REPORT INFORMATION
  Report Type: Report from Study
  Country: PK (occurrence: PK)
  Receive Date: 20150522
  Receipt Date: 20150623
  Transmission Date: 20150821
  Serious: Yes (Hospitalization)
  Sender: FDA-Public Use
  Company Number: PHHY2015PK061632

PATIENT
  Age: 31 Year
  Sex: Male

DRUGS (2)
  1. TASIGNA [Suspect]
     Active Substance: NILOTINIB
     Indication: CHRONIC MYELOID LEUKAEMIA
     Dosage: 600 MG, QD (2+1 DF)
     Route: 048
     Dates: start: 20141209
  2. TASIGNA [Suspect]
     Active Substance: NILOTINIB
     Dosage: 400 MG, QD
     Route: 065

REACTIONS (7)
  - Headache [Unknown]
  - Pyrexia [Unknown]
  - Central nervous system viral infection [Unknown]
  - Splenomegaly [Unknown]
  - Oral candidiasis [Unknown]
  - Nervous system disorder [Unknown]
  - Meningitis tuberculous [Unknown]

NARRATIVE: CASE EVENT DATE: 20150520
